FAERS Safety Report 24576569 (Version 1)
Quarter: 2024Q4

REPORT INFORMATION
  Report Type: Spontaneous
  Country: US (occurrence: US)
  Receive Date: 20241104
  Receipt Date: 20241104
  Transmission Date: 20250115
  Serious: No
  Sender: PFIZER
  Company Number: US-PFIZER INC-PV202400141673

PATIENT
  Age: 73 Year

DRUGS (1)
  1. IBRANCE [Suspect]
     Active Substance: PALBOCICLIB
     Dosage: 100 MG, CYCLIC (1 PO (PER ORAL) DAILY DAYS 1-21 WITH EACH 28 DAY CYCLE)
     Route: 048

REACTIONS (1)
  - Neutrophil count abnormal [Unknown]
